FAERS Safety Report 9525552 (Version 2)
Quarter: 2013Q4

REPORT INFORMATION
  Report Type: Spontaneous
  Country: KR (occurrence: KR)
  Receive Date: 20130916
  Receipt Date: 20131231
  Transmission Date: 20140711
  Serious: Yes (Other)
  Sender: FDA-Public Use
  Company Number: KR-ROCHE-1275652

PATIENT
  Age: 62 Year
  Sex: Male

DRUGS (2)
  1. RANIBIZUMAB [Suspect]
     Indication: POLYPOIDAL CHOROIDAL VASCULOPATHY
     Dosage: 0.5MG / 0.05ML
     Route: 050
  2. RANIBIZUMAB [Suspect]
     Indication: OFF LABEL USE

REACTIONS (2)
  - Retinal detachment [Unknown]
  - Visual acuity tests abnormal [Unknown]
